APPROVED DRUG PRODUCT: VIVELLE-DOT
Active Ingredient: ESTRADIOL
Strength: 0.075MG/24HR
Dosage Form/Route: SYSTEM;TRANSDERMAL
Application: N020538 | Product #007 | TE Code: AB1
Applicant: SANDOZ INC
Approved: Jan 8, 1999 | RLD: Yes | RS: No | Type: RX